FAERS Safety Report 8770407 (Version 2)
Quarter: 2012Q4

REPORT INFORMATION
  Report Type: 
  Country: US (occurrence: US)
  Receive Date: 20120830
  Receipt Date: 20121217
  Transmission Date: 20130627
  Serious: Yes (Hospitalization)
  Sender: FDA-Public Use
  Company Number: US-ELI_LILLY_AND_COMPANY-US201208008491

PATIENT
  Sex: Female

DRUGS (3)
  1. CYMBALTA [Suspect]
     Indication: DEPRESSION
     Dosage: 60 mg, qd
     Route: 048
  2. CYMBALTA [Suspect]
     Dosage: 30 mg, qd
     Route: 048
  3. CHEMOTHERAPEUTICS [Concomitant]
     Indication: BREAST CANCER

REACTIONS (1)
  - Transient ischaemic attack [Recovered/Resolved]
